FAERS Safety Report 6784890-3 (Version None)
Quarter: 2010Q2

REPORT INFORMATION
  Report Type: 
  Country: None (occurrence: None)
  Receive Date: 20100618
  Receipt Date: 20100524
  Transmission Date: 20101027
  Serious: Yes (Life-Threatening)
  Sender: FDA-Public Use
  Company Number: CIO10007385

PATIENT
  Age: 72 Year
  Sex: Female

DRUGS (4)
  1. CREST WHITENING PLUS SCOPE TOOTHPASTE, MINTY FRESH FLAVOR(SODIUM ACID [Suspect]
     Dosage: 1 APPLIC, 1/DAY FOR 2 DAYS, INTRAORAL
     Route: 048
     Dates: start: 20100520, end: 20100521
  2. BIAXIN [Concomitant]
  3. THEOPHYLLINE [Concomitant]
  4. ADVIL (MEFENAMIC ACID) [Concomitant]

REACTIONS (9)
  - APHAGIA [None]
  - BLOOD PRESSURE INCREASED [None]
  - CHOKING [None]
  - DYSPNOEA [None]
  - HEART RATE INCREASED [None]
  - LIP SWELLING [None]
  - OEDEMA MOUTH [None]
  - PHARYNGEAL OEDEMA [None]
  - SWOLLEN TONGUE [None]
